FAERS Safety Report 6651926-X (Version None)
Quarter: 2010Q1

REPORT INFORMATION
  Report Type: 
  Country: None (occurrence: None)
  Receive Date: 20100323
  Receipt Date: 20100308
  Transmission Date: 20100710
  Serious: Yes (Death)
  Sender: FDA-Public Use
  Company Number: 2009002721

PATIENT
  Age: 63 Year
  Sex: Female

DRUGS (5)
  1. ERLOTINIB (ERLOTINIB) (TABLET) (ERLOTINIB) [Suspect]
     Indication: PANCREATIC CARCINOMA METASTATIC
     Dosage: 100 MG, QD, ORAL
     Route: 048
     Dates: start: 20090709, end: 20090826
  2. GEMCITABINE [Suspect]
     Indication: PANCREATIC CARCINOMA METASTATIC
     Dosage: 1125 MG, QW; INTRAVENOUS
     Route: 042
     Dates: start: 20090709, end: 20090826
  3. ATIVAN [Concomitant]
  4. GLIPIZIDE [Concomitant]
  5. INSULATARD NPH HUMAN [Concomitant]

REACTIONS (9)
  - FALL [None]
  - HAEMATOCRIT DECREASED [None]
  - HAEMOGLOBIN DECREASED [None]
  - LYMPHOCYTE COUNT DECREASED [None]
  - MEAN CELL VOLUME DECREASED [None]
  - NEUTROPHIL COUNT DECREASED [None]
  - OSTEOSCLEROSIS [None]
  - PNEUMONIA [None]
  - PULMONARY THROMBOSIS [None]
